FAERS Safety Report 15583658 (Version 2)
Quarter: 2018Q4

REPORT INFORMATION
  Report Type: Report from Study
  Country: US (occurrence: US)
  Receive Date: 20181105
  Receipt Date: 20181129
  Transmission Date: 20190205
  Serious: Yes (Hospitalization)
  Sender: FDA-Public Use
  Company Number: US-HORIZON-HPN-100-014-0040-2018

PATIENT
  Age: 6 Year
  Sex: Female

DRUGS (5)
  1. RAVICTI [Suspect]
     Active Substance: GLYCEROL PHENYLBUTYRATE
     Indication: ORNITHINE TRANSCARBAMOYLASE DEFICIENCY
     Dosage: 1 ML TID
     Route: 048
     Dates: start: 20140807
  2. L-ARGININE [Concomitant]
     Active Substance: ARGININE
     Indication: HYPERAMMONAEMIA
     Dosage: SEE NARRATIVE
  3. CITRULLINE [Concomitant]
     Active Substance: CITRULLINE
     Indication: ORNITHINE TRANSCARBAMOYLASE DEFICIENCY
     Dosage: SEE NARRATIVE
     Dates: start: 20140626
  4. UCD TRIO [Concomitant]
     Indication: UREA CYCLE DISORDER
     Dosage: 66 GRAMS DAILY
     Dates: start: 20150728
  5. CYCLINEX-2 [Concomitant]
     Indication: ORNITHINE TRANSCARBAMOYLASE DEFICIENCY
     Dosage: SEE NARRATIVE
     Dates: start: 20140626, end: 20141223

REACTIONS (1)
  - Hyperammonaemia [Recovered/Resolved]

NARRATIVE: CASE EVENT DATE: 20170425
